FAERS Safety Report 9841039 (Version 1)
Quarter: 2013Q4

REPORT INFORMATION
  Report Type: Spontaneous
  Country: US (occurrence: None)
  Receive Date: 20131219
  Receipt Date: 20131219
  Transmission Date: 20140711
  Serious: Yes (Hospitalization, Other)
  Sender: FDA-Public Use
  Company Number: 163-20785-12090143

PATIENT
  Age: 43 Year
  Sex: Male
  Weight: 299.4 kg

DRUGS (33)
  1. THALOMID [Suspect]
     Indication: PLASMA CELL MYELOMA
     Dosage: 200 MG, DAILY X4 DAYS, PO
     Route: 048
     Dates: start: 2012
  2. VELCADE (BORTEZOMIB) (UNKNOWN) [Suspect]
     Route: 042
     Dates: start: 20120601
  3. CISPLATIN [Suspect]
     Dosage: 20 MG, DAYS 4-7, IV
     Route: 042
     Dates: start: 20120606
  4. ADRIAMYCIN [Suspect]
     Indication: ILL-DEFINED DISORDER
     Dosage: 20 MG, DAYS 4-7, IV
     Route: 042
     Dates: start: 20120606
  5. CYCLOPHOSPHAMIDE (CYCLOPHOSPHAMIDE) (UNKNOWN) (CYCLOPHOSAPHAMIDE) [Suspect]
     Indication: ILL-DEFINED DISORDER
     Dosage: 800 MG, DAYS 4-7, IV
     Route: 042
     Dates: start: 20120606
  6. ETOPOSIDE [Suspect]
     Indication: ILL-DEFINED DISORDER
     Dosage: 80 MG, DAYS 4-7, IV
     Route: 042
     Dates: start: 20120606
  7. DEXAMETHASONE (DEXAMETHASONE) [Concomitant]
  8. LOCVENOX )HEPATIN-FRACTION, SODIUM SALT) [Concomitant]
  9. LEVAQUIN (LEVOFLOXACIN) [Concomitant]
  10. CETIRIZINE (CETIRIZINE) [Concomitant]
  11. CYCLOBENZAPRINE (CYCLOBENZAPRINE) [Concomitant]
  12. FUROSEMIDE (FUROSEMIDE) [Concomitant]
  13. ALPRAZOLAM (ALPRAZOLAM) [Concomitant]
  14. SINGULAIR [Concomitant]
  15. KETOCONAZOLE (KETOCONAZOLE) [Concomitant]
  16. CYMBALTA (DULOXETINE HYDROCHLORIDE) [Concomitant]
  17. FLONASE (FLUTICASONE PROPIONATE) [Concomitant]
  18. GABAPENTIN (GABAPENTIN) [Concomitant]
  19. LACTULOSE (LACTULOSE) [Concomitant]
  20. MS CONTIN (MORPHINE SULFATE) [Concomitant]
  21. MULTIVITAMINS (MULTIVITAMINS) [Concomitant]
  22. OMEPRAZOLE (OMEPRAZOLE) [Concomitant]
  23. ONDANSETRON (ONDANSETRON) [Concomitant]
  24. OXYCODONE HCL/ACETAMINOPHEN (OXYCOCET) [Concomitant]
  25. PHOS-NAK (PHOS-NAK) [Concomitant]
  26. PROCHLORPERAZINE MALEATE (PROCHLORPERAZINE MALEATE) [Concomitant]
  27. SENNA (SENNA) [Concomitant]
  28. TRAMADOL HCL [Concomitant]
  29. TYLENOL (PARACETAMOL) [Concomitant]
  30. VITAMIN D3 (COLECALCIFEROL) [Concomitant]
  31. VITAMIN C (ASCORBIC ACID) [Concomitant]
  32. ALLEGRA [Concomitant]
  33. TRAZODONE HYDROCHLORIDE (TRAZODONE HYDROCHLORIDE) [Concomitant]

REACTIONS (5)
  - Thrombocytopenia [None]
  - Epistaxis [None]
  - Anaemia [None]
  - Hypokalaemia [None]
  - Oedema peripheral [None]
